FAERS Safety Report 5763494-5 (Version None)
Quarter: 2008Q2

REPORT INFORMATION
  Report Type: 
  Country: None (occurrence: None)
  Receive Date: 20080529
  Receipt Date: 20080401
  Transmission Date: 20081010
  Serious: Yes (Other)
  Sender: FDA-Public Use
  Company Number: FLCT20080076

PATIENT
  Age: 84 Year
  Sex: Female
  Weight: 78.0187 kg

DRUGS (5)
  1. FLECTOR [Suspect]
     Indication: ARTHRALGIA
     Dosage: 1 PATCH APPLIED ONCE, TOPICAL
     Route: 061
     Dates: start: 20080315, end: 20080315
  2. PREDNISONE TAB [Concomitant]
  3. ALTACE [Concomitant]
  4. HYDRALAZINE HCL [Concomitant]
  5. LEVOTHYROXINE SODIUM [Concomitant]

REACTIONS (1)
  - ANAPHYLACTIC REACTION [None]
